FAERS Safety Report 5644351-1 (Version None)
Quarter: 2008Q1

REPORT INFORMATION
  Report Type: 
  Country: None (occurrence: None)
  Receive Date: 20080229
  Receipt Date: 20080226
  Transmission Date: 20080703
  Serious: Yes (Life-Threatening, Hospitalization, Other)
  Sender: FDA-Public Use
  Company Number: JP-BRISTOL-MYERS SQUIBB COMPANY-14026553

PATIENT
  Age: 32 Year
  Sex: Female

DRUGS (3)
  1. BLEO [Suspect]
     Indication: OVARIAN GERM CELL ENDODERMAL SINUS TUMOUR STAGE III
     Dosage: 30MG/DAY FOR 2DAYS;CUMULATIVE DOSE WAS 120MG(30MGX4).ALSO TAKEN ON 20NOV07,27NOV07+11DEC07(29MG/DAY)
     Dates: start: 20071218, end: 20071218
  2. LASTET [Suspect]
     Indication: OVARIAN GERM CELL ENDODERMAL SINUS TUMOUR STAGE III
     Dosage: 100 MG/M2 PER DAY, FOR DAYS 1-5. ALSO TAKEN ON 19-NOV-07 TO 23-NOV-07(140MG/DAY).
     Dates: start: 20071210, end: 20071214
  3. RANDA [Suspect]
     Indication: OVARIAN GERM CELL ENDODERMAL SINUS TUMOUR STAGE III
     Dosage: 20MG/M2 PER DAY, FOR DAYS 1-5.ALSO TAKEN ON 19-NOV-07 TO 23-NOV-07(30MG/DAY).
     Dates: start: 20071210, end: 20071214

REACTIONS (5)
  - NEUTROPHIL COUNT DECREASED [None]
  - PNEUMONIA [None]
  - PULMONARY EMBOLISM [None]
  - PYREXIA [None]
  - VENTRICULAR FIBRILLATION [None]
